FAERS Safety Report 5822566-7 (Version None)
Quarter: 2008Q3

REPORT INFORMATION
  Report Type: 
  Country: None (occurrence: None)
  Receive Date: 20080723
  Receipt Date: 20080723
  Transmission Date: 20090109
  Serious: Yes (Death)
  Sender: FDA-Public Use
  Company Number: None

PATIENT
  Age: 8 Year
  Sex: Male
  Weight: 32 kg

DRUGS (12)
  1. TEMOZOLOMIDE [Suspect]
     Indication: BRAIN NEOPLASM
     Dosage: 220 MG QD X 5 DAYS  PO
     Route: 048
     Dates: start: 20080701, end: 20080705
  2. ETOPOSIDE [Suspect]
     Indication: BRAIN NEOPLASM
     Dosage: 56 MG QD X 10 DAYS PO
     Route: 048
     Dates: start: 20080701, end: 20080710
  3. VINCRISTINE [Suspect]
     Indication: BRAIN NEOPLASM
     Dosage: 1.7 MG QD X 3 DAYS DAY 0, 7 AND 14 IV
     Route: 042
     Dates: start: 20080701
  4. VINCRISTINE [Suspect]
     Indication: BRAIN NEOPLASM
     Dosage: 1.7 MG QD X 3 DAYS DAY 0, 7 AND 14 IV
     Route: 042
     Dates: start: 20080708
  5. VINCRISTINE [Suspect]
     Indication: BRAIN NEOPLASM
     Dosage: 1.7 MG QD X 3 DAYS DAY 0, 7 AND 14 IV
     Route: 042
     Dates: start: 20080715
  6. CYCLOPHOSPHAMIDE [Suspect]
     Indication: BRAIN NEOPLASM
     Dosage: 1755 MG QD X 2 DAYS DAY 10 AND 11 IV
     Route: 042
     Dates: start: 20080711
  7. CYCLOPHOSPHAMIDE [Suspect]
     Indication: BRAIN NEOPLASM
     Dosage: 1755 MG QD X 2 DAYS DAY 10 AND 11 IV
     Route: 042
     Dates: start: 20080712
  8. DIPHENHYDRAMINE HCL [Concomitant]
  9. SCOPOLAMINE [Concomitant]
  10. ONDANSETRON [Concomitant]
  11. FAMOTIDINE [Concomitant]
  12. METOCLOPROMIDE [Concomitant]

REACTIONS (20)
  - ABDOMINAL DISTENSION [None]
  - ABDOMINAL PAIN [None]
  - ABDOMINAL TENDERNESS [None]
  - APNOEA [None]
  - BLOOD PRESSURE DECREASED [None]
  - BODY TEMPERATURE DECREASED [None]
  - CARDIAC ARREST [None]
  - CARDIOVASCULAR DISORDER [None]
  - DIARRHOEA [None]
  - DISCOMFORT [None]
  - DRY SKIN [None]
  - OXYGEN SATURATION DECREASED [None]
  - POOR PERIPHERAL CIRCULATION [None]
  - PULMONARY OEDEMA [None]
  - RESPIRATORY RATE INCREASED [None]
  - SYNCOPE [None]
  - TACHYCARDIA [None]
  - UNRESPONSIVE TO STIMULI [None]
  - URINE OUTPUT DECREASED [None]
  - VOMITING [None]
